FAERS Safety Report 16180986 (Version 1)
Quarter: 2019Q2

REPORT INFORMATION
  Report Type: Spontaneous
  Country: DE (occurrence: DE)
  Receive Date: 20190410
  Receipt Date: 20190410
  Transmission Date: 20190711
  Serious: Yes (Other)
  Sender: FDA-Public Use
  Company Number: DE-EMD SERONO-9044449

PATIENT
  Age: 48 Year
  Sex: Female

DRUGS (2)
  1. MAVENCLAD [Suspect]
     Active Substance: CLADRIBINE
     Indication: MULTIPLE SCLEROSIS
     Dosage: FIRST WEEK THERAPY WITH 6 TABLETS IN TOTAL
     Dates: start: 20171211
  2. MAVENCLAD [Suspect]
     Active Substance: CLADRIBINE
     Dosage: SECOND WEEK THERAPY WITH 6 TABLETS IN TOTAL
     Dates: start: 20180130

REACTIONS (5)
  - Leukopenia [Not Recovered/Not Resolved]
  - Bone marrow failure [Unknown]
  - Lymphopenia [Not Recovered/Not Resolved]
  - Blood iron increased [Recovered/Resolved]
  - Thrombocytopenia [Not Recovered/Not Resolved]
